FAERS Safety Report 4754486-3 (Version None)
Quarter: 2005Q3

REPORT INFORMATION
  Report Type: 
  Country: None (occurrence: None)
  Receive Date: 20050829
  Receipt Date: 20050303
  Transmission Date: 20060218
  Serious: No
  Sender: FDA-Public Use
  Company Number: 0011108

PATIENT
  Sex: Female

DRUGS (1)
  1. ZOVIRAX [Suspect]
     Indication: DRUG USE FOR UNKNOWN INDICATION
     Dosage: 6APP PER DAY
     Dates: start: 20030609

REACTIONS (2)
  - DRUG INEFFECTIVE [None]
  - PHARMACEUTICAL PRODUCT COMPLAINT [None]
